FAERS Safety Report 7900393 (Version 6)
Quarter: 2013Q4

REPORT INFORMATION
  Report Type: Report from Study
  Country: US (occurrence: US)
  Receive Date: 20110415
  Receipt Date: 20131111
  Transmission Date: 20140711
  Serious: Yes (Hospitalization)
  Sender: FDA-Public Use
  Company Number: US-JNJFOC-20110401367

PATIENT
  Age: 34 Year
  Sex: Male
  Weight: 108.86 kg

DRUGS (5)
  1. INFLIXIMAB, RECOMBINANT [Suspect]
     Indication: PSORIASIS
     Route: 042
     Dates: start: 20110427, end: 20110427
  2. INFLIXIMAB, RECOMBINANT [Suspect]
     Indication: PSORIASIS
     Route: 042
     Dates: start: 20100921
  3. ADALIMUMAB [Concomitant]
     Route: 065
     Dates: start: 20110519
  4. ADALIMUMAB [Concomitant]
     Route: 065
     Dates: start: 20060428, end: 20100818
  5. TOPICAL CORTICOSTEROIDS [Concomitant]
     Route: 061

REACTIONS (4)
  - Dyspnoea [Recovered/Resolved with Sequelae]
  - Aortic valve incompetence [Recovered/Resolved with Sequelae]
  - Cardiac valve replacement complication [Recovered/Resolved with Sequelae]
  - Aortic stenosis [Unknown]
